FAERS Safety Report 8312643-3 (Version None)
Quarter: 2012Q2

REPORT INFORMATION
  Report Type: 
  Country: None (occurrence: None)
  Receive Date: 20120424
  Receipt Date: 20120412
  Transmission Date: 20120825
  Serious: Yes (Hospitalization)
  Sender: FDA-Public Use
  Company Number: 2012-00634

PATIENT
  Age: 69 Year
  Sex: Male

DRUGS (6)
  1. DAPTOMYCIN [Suspect]
     Indication: PRODUCT USED FOR UNKNOWN INDICATION
     Dosage: 900 MG (900 MG, DAILY), INTRAVNOUS; 680 MG (680 MG, 1 IN 1 D), INTRAVENOUS
     Route: 042
  2. GENTAMICIN [Concomitant]
  3. LEVOFLOXACIN [Concomitant]
  4. SIMVASTATIN [Suspect]
     Indication: PRODUCT USED FOR UNKNOWN INDICATION
     Dosage: 40 MG , UNKNOWN, DAILY
  5. CEFEPIME [Concomitant]
  6. VANCOMYCIN [Concomitant]

REACTIONS (4)
  - POTENTIATING DRUG INTERACTION [None]
  - BLOOD POTASSIUM INCREASED [None]
  - RHABDOMYOLYSIS [None]
  - BLOOD CREATININE INCREASED [None]
